FAERS Safety Report 10687236 (Version 2)
Quarter: 2015Q3

REPORT INFORMATION
  Report Type: Spontaneous
  Country: US (occurrence: US)
  Receive Date: 20150102
  Receipt Date: 20150803
  Transmission Date: 20151125
  Serious: No
  Sender: FDA-Public Use
  Company Number: US-BAYER-2015-000086

PATIENT
  Age: 31 Year
  Sex: Female

DRUGS (1)
  1. BETASERON [Suspect]
     Active Substance: INTERFERON BETA-1B
     Indication: MULTIPLE SCLEROSIS
     Dosage: UNK
     Route: 058
     Dates: start: 201409

REACTIONS (4)
  - Device malfunction [None]
  - Injection site pain [Not Recovered/Not Resolved]
  - Urticaria [None]
  - Injection site urticaria [None]

NARRATIVE: CASE EVENT DATE: 201409
